FAERS Safety Report 17174217 (Version 2)
Quarter: 2019Q4

REPORT INFORMATION
  Report Type: Spontaneous
  Country: US (occurrence: US)
  Receive Date: 20191219
  Receipt Date: 20191223
  Transmission Date: 20200122
  Serious: Yes (Life-Threatening, Other)
  Sender: FDA-Public Use
  Company Number: US-PFIZER INC-2019546258

PATIENT
  Age: 41 Year
  Sex: Female
  Weight: 78.2 kg

DRUGS (4)
  1. ZOLOFT [Suspect]
     Active Substance: SERTRALINE HYDROCHLORIDE
     Indication: AGORAPHOBIA
  2. ZOLOFT [Suspect]
     Active Substance: SERTRALINE HYDROCHLORIDE
     Indication: DEPRESSION
  3. ZOLOFT [Suspect]
     Active Substance: SERTRALINE HYDROCHLORIDE
     Indication: ANXIETY DISORDER
     Dosage: 200 MG, 1X/DAY (TWO TABLETS AT NIGHT BY MOUTH)
     Route: 048
     Dates: start: 1994
  4. ZOLOFT [Suspect]
     Active Substance: SERTRALINE HYDROCHLORIDE
     Indication: OBSESSIVE-COMPULSIVE DISORDER

REACTIONS (4)
  - Drug dependence [Not Recovered/Not Resolved]
  - Suicidal ideation [Unknown]
  - Feeling abnormal [Unknown]
  - Eye disorder [Unknown]

NARRATIVE: CASE EVENT DATE: 201012
